FAERS Safety Report 9715031 (Version 1)
Quarter: 2013Q4

REPORT INFORMATION
  Report Type: Spontaneous
  Country: CN (occurrence: CN)
  Receive Date: 20131126
  Receipt Date: 20131126
  Transmission Date: 20140711
  Serious: Yes (Other)
  Sender: FDA-Public Use
  Company Number: CN-ALLERGAN-1318299US

PATIENT
  Age: 48 Year
  Sex: Male

DRUGS (4)
  1. FLUOROMETHOLONE UNK [Suspect]
     Indication: PRODUCT USED FOR UNKNOWN INDICATION
     Route: 047
  2. FLUOROMETHOLONE UNK [Suspect]
     Indication: POSTOPERATIVE CARE
  3. TOBRAMYCIN [Concomitant]
     Indication: POSTOPERATIVE CARE
  4. TOBRAMYCIN [Concomitant]
     Indication: POSTOPERATIVE CARE

REACTIONS (5)
  - Dellen [Unknown]
  - Corneal neovascularisation [Unknown]
  - Eye ulcer [Unknown]
  - Conjunctival hyperaemia [Not Recovered/Not Resolved]
  - Foreign body sensation in eyes [Unknown]
